FAERS Safety Report 18881399 (Version 1)
Quarter: 2021Q1

REPORT INFORMATION
  Report Type: Report from Study
  Country: JP (occurrence: JP)
  Receive Date: 20210211
  Receipt Date: 20210211
  Transmission Date: 20210420
  Serious: Yes (Other)
  Sender: FDA-Public Use
  Company Number: JP-ASTRAZENECA-2021A044973

PATIENT

DRUGS (1)
  1. BIPRESSO [QUETIAPINE FUMARATE] [Suspect]
     Active Substance: QUETIAPINE FUMARATE
     Route: 065

REACTIONS (1)
  - Sedation complication [Unknown]
